FAERS Safety Report 17031678 (Version 1)
Quarter: 2019Q4

REPORT INFORMATION
  Report Type: Other
  Country: CN (occurrence: CN)
  Receive Date: 20191114
  Receipt Date: 20191114
  Transmission Date: 20200122
  Serious: Yes (Life-Threatening, Other)
  Sender: FDA-Public Use
  Company Number: CN-GE HEALTHCARE LIFE SCIENCES-2019CSU005726

PATIENT

DRUGS (3)
  1. OMNIPAQUE [Suspect]
     Active Substance: IOHEXOL
     Indication: PANCREATITIS ACUTE
  2. OMNIPAQUE [Suspect]
     Active Substance: IOHEXOL
     Indication: COMPUTERISED TOMOGRAM
     Dosage: 100 ML, SINGLE
     Route: 041
     Dates: start: 20191103, end: 20191103
  3. OMNIPAQUE [Suspect]
     Active Substance: IOHEXOL
     Indication: BILIARY DILATATION

REACTIONS (4)
  - Coma [Recovering/Resolving]
  - Heart rate increased [Recovering/Resolving]
  - Incontinence [Recovering/Resolving]
  - Haemodynamic instability [Recovering/Resolving]

NARRATIVE: CASE EVENT DATE: 20191103
